FAERS Safety Report 16473852 (Version 5)
Quarter: 2019Q4

REPORT INFORMATION
  Report Type: Report from Study
  Country: CA (occurrence: CA)
  Receive Date: 20190625
  Receipt Date: 20191227
  Transmission Date: 20200122
  Serious: Yes (Other)
  Sender: FDA-Public Use
  Company Number: PHHY2019CA069990

PATIENT
  Age: 77 Year
  Sex: Female
  Weight: 76 kg

DRUGS (10)
  1. LUTEIN [Concomitant]
     Active Substance: LUTEIN
     Indication: PRODUCT USED FOR UNKNOWN INDICATION
     Route: 065
  2. CANDESARTAN. [Concomitant]
     Active Substance: CANDESARTAN
     Indication: PRODUCT USED FOR UNKNOWN INDICATION
     Dosage: 60 MG, UNK
     Route: 065
  3. EYECARE [Concomitant]
     Indication: PRODUCT USED FOR UNKNOWN INDICATION
     Route: 065
  4. OMEGA 3 [Concomitant]
     Active Substance: OMEGA-3 FATTY ACIDS
     Indication: PRODUCT USED FOR UNKNOWN INDICATION
     Route: 065
  5. GLUCOSAMINE [Concomitant]
     Active Substance: GLUCOSAMINE
     Indication: PRODUCT USED FOR UNKNOWN INDICATION
     Dosage: SUPPER TIME
     Route: 065
  6. PREDNISONE. [Suspect]
     Active Substance: PREDNISONE
     Indication: PRODUCT USED FOR UNKNOWN INDICATION
     Dosage: 30 MG, UNK
     Route: 065
  7. REVOLADE [Suspect]
     Active Substance: ELTROMBOPAG
     Indication: IMMUNE THROMBOCYTOPENIC PURPURA
     Dosage: 50 MG, QD
     Route: 048
     Dates: start: 20190309
  8. VITALUX [Concomitant]
     Active Substance: MINERALS\VITAMINS
     Indication: MACULAR DEGENERATION
     Dosage: AT NOON HOUR
     Route: 065
  9. SULFAMETHOXAZOL [Concomitant]
     Active Substance: SULFAMETHOXAZOLE
     Indication: PRODUCT USED FOR UNKNOWN INDICATION
     Dosage: 400/80 MG, QW3
     Route: 065
  10. SYNTHROID [Concomitant]
     Active Substance: LEVOTHYROXINE SODIUM
     Indication: PRODUCT USED FOR UNKNOWN INDICATION
     Dosage: UNK UNK, QD
     Route: 065

REACTIONS (31)
  - Flatulence [Unknown]
  - Weight decreased [Unknown]
  - Osteoarthritis [Unknown]
  - Renal cyst [Unknown]
  - Lower respiratory tract infection [Unknown]
  - Arthropathy [Unknown]
  - Arthritis [Unknown]
  - Dyspnoea [Recovered/Resolved]
  - Fatigue [Unknown]
  - Asthenopia [Unknown]
  - Diplopia [Unknown]
  - Cystitis [Recovered/Resolved]
  - Diarrhoea [Unknown]
  - Flushing [Unknown]
  - Back pain [Unknown]
  - Musculoskeletal stiffness [Unknown]
  - Peripheral swelling [Unknown]
  - Pain in extremity [Unknown]
  - Pain [Unknown]
  - Dysuria [Recovering/Resolving]
  - Platelet count decreased [Recovering/Resolving]
  - Ill-defined disorder [Unknown]
  - Renal disorder [Unknown]
  - Vision blurred [Unknown]
  - Abdominal pain [Unknown]
  - Rash [Unknown]
  - Headache [Unknown]
  - Nasopharyngitis [Unknown]
  - Blood pressure abnormal [Unknown]
  - Wheezing [Unknown]
  - Fluid intake reduced [Unknown]

NARRATIVE: CASE EVENT DATE: 20190430
